FAERS Safety Report 9100593 (Version 2)
Quarter: 2013Q1

REPORT INFORMATION
  Report Type: Report from Study
  Country: NL (occurrence: NL)
  Receive Date: 20130215
  Receipt Date: 20130327
  Transmission Date: 20140127
  Serious: Yes (Hospitalization)
  Sender: FDA-Public Use
  Company Number: NL-JNJFOC-20130206501

PATIENT
  Age: 33 Year
  Sex: Male
  Weight: 102 kg

DRUGS (8)
  1. USTEKINUMAB [Suspect]
     Indication: CROHN^S DISEASE
     Dates: start: 20121211
  2. USTEKINUMAB [Suspect]
     Indication: CROHN^S DISEASE
     Dates: start: 20121017
  3. PLACEBO [Suspect]
     Indication: CROHN^S DISEASE
     Dates: start: 20121211
  4. PLACEBO [Suspect]
     Indication: CROHN^S DISEASE
     Dates: start: 20121017
  5. PREDNISOLONE [Concomitant]
     Indication: CROHN^S DISEASE
     Route: 048
     Dates: start: 201103
  6. CALCICHEW [Concomitant]
     Indication: OSTEOPOROSIS PROPHYLAXIS
     Route: 048
     Dates: start: 201103
  7. CIPROFLOXACIN [Concomitant]
     Indication: CROHN^S DISEASE
     Route: 048
     Dates: start: 20110320
  8. OMEPRAZOLE [Concomitant]
     Indication: GASTROINTESTINAL DISORDER THERAPY
     Route: 048
     Dates: start: 201103

REACTIONS (1)
  - Ileal ulcer [Recovered/Resolved]
